FAERS Safety Report 10057047 (Version 1)
Quarter: 2014Q2

REPORT INFORMATION
  Report Type: Spontaneous
  Country: GB (occurrence: GB)
  Receive Date: 20140403
  Receipt Date: 20140403
  Transmission Date: 20141212
  Serious: Yes (Congenital Anomaly)
  Sender: FDA-Public Use
  Company Number: GB-WATSON-2014-06080

PATIENT
  Sex: 0

DRUGS (2)
  1. CITALOPRAM (UNKNOWN) [Suspect]
     Indication: DEPRESSION
     Dosage: 10 MG, UNK (30MG INITIALLY, THEN REDUCED TO 10MG FROM FIRST TRIMESTER OF PREGNANCY)
     Route: 064
  2. CITALOPRAM (UNKNOWN) [Suspect]
     Dosage: 30 MG, UNK (30MG INITIALLY, THEN REDUCED TO 10MG FROM FIRST TRIMESTER OF PREGNANCY)
     Route: 064
     Dates: start: 20111117

REACTIONS (1)
  - Fallot^s tetralogy [Unknown]
